FAERS Safety Report 4561163-0 (Version None)
Quarter: 2005Q1

REPORT INFORMATION
  Report Type: 
  Country: None (occurrence: None)
  Receive Date: 20050126
  Receipt Date: 20050120
  Transmission Date: 20050727
  Serious: Yes (Hospitalization)
  Sender: FDA-Public Use
  Company Number: FR-BRISTOL-MYERS SQUIBB COMPANY-12833018

PATIENT
  Age: 52 Year
  Sex: Male

DRUGS (5)
  1. SUSTIVA [Suspect]
     Indication: HIV INFECTION
     Route: 048
     Dates: start: 20050119, end: 20050120
  2. REYATAZ [Suspect]
     Indication: HIV INFECTION
     Route: 048
     Dates: start: 20050119
  3. COZAAR [Concomitant]
  4. AVLOCARDYL [Concomitant]
  5. ZANIDIP [Concomitant]

REACTIONS (2)
  - HYPERTENSION [None]
  - MALAISE [None]
